FAERS Safety Report 21528164 (Version 1)
Quarter: 2022Q4

REPORT INFORMATION
  Report Type: Spontaneous
  Country: US (occurrence: US)
  Receive Date: 20221031
  Receipt Date: 20221031
  Transmission Date: 20230112
  Serious: No
  Sender: FDA-Public Use
  Company Number: US-RECKITT BENCKISER HEALTHCARE INT LIMITED-RB-98446-2021

PATIENT
  Age: 73 Year
  Sex: Female
  Weight: 162 kg

DRUGS (1)
  1. MUCINEX [Suspect]
     Active Substance: GUAIFENESIN
     Indication: Nasopharyngitis
     Dosage: 2 DOSAGE FORM, BID
     Route: 048
     Dates: start: 20211025

REACTIONS (3)
  - Urticaria [Not Recovered/Not Resolved]
  - Product use in unapproved indication [Not Recovered/Not Resolved]
  - Pruritus [Recovered/Resolved]

NARRATIVE: CASE EVENT DATE: 20211025
